FAERS Safety Report 4915398-5 (Version None)
Quarter: 2006Q1

REPORT INFORMATION
  Report Type: 
  Country: None (occurrence: None)
  Receive Date: 20060217
  Receipt Date: 20050829
  Transmission Date: 20060701
  Serious: Yes (Hospitalization)
  Sender: FDA-Public Use
  Company Number: US-MERCK-0508USA04728

PATIENT
  Age: 82 Year
  Sex: Female
  Weight: 75 kg

DRUGS (2)
  1. VIOXX [Suspect]
     Indication: PAIN MANAGEMENT
     Route: 048
     Dates: start: 20000101, end: 20030616
  2. ASPIRIN [Concomitant]
     Route: 065

REACTIONS (3)
  - ARTHROPATHY [None]
  - CHEST PAIN [None]
  - MYOCARDIAL INFARCTION [None]
